FAERS Safety Report 9614588 (Version 1)
Quarter: 2013Q4

REPORT INFORMATION
  Report Type: Spontaneous
  Country: CN (occurrence: CN)
  Receive Date: 20131011
  Receipt Date: 20131011
  Transmission Date: 20140711
  Serious: Yes (Hospitalization)
  Sender: FDA-Public Use
  Company Number: CN-ROCHE-1286101

PATIENT
  Age: 44 Year
  Sex: Female

DRUGS (6)
  1. CAPECITABINE [Suspect]
     Indication: NEOPLASM MALIGNANT
     Route: 048
     Dates: start: 20120719, end: 20120801
  2. PACLITAXEL [Suspect]
     Indication: NEOPLASM MALIGNANT
     Route: 042
     Dates: start: 20120719, end: 20120719
  3. SODIUM CHLORIDE [Suspect]
     Indication: PRODUCT USED FOR UNKNOWN INDICATION
     Route: 042
     Dates: start: 20120719, end: 20120719
  4. DEXAMETHASONE [Concomitant]
  5. TROPISETRON [Concomitant]
  6. OMEPRAZOLE [Concomitant]

REACTIONS (2)
  - Appetite disorder [Recovered/Resolved]
  - Gastrooesophageal reflux disease [Recovered/Resolved]
